FAERS Safety Report 8123977-X (Version None)
Quarter: 2012Q1

REPORT INFORMATION
  Report Type: 
  Country: None (occurrence: None)
  Receive Date: 20120209
  Receipt Date: 20120131
  Transmission Date: 20120608
  Serious: Yes (Other)
  Sender: FDA-Public Use
  Company Number: US-JNJFOC-20120200910

PATIENT
  Sex: Female
  Weight: 81.65 kg

DRUGS (2)
  1. REMICADE [Suspect]
     Indication: RHEUMATOID ARTHRITIS
     Dosage: 8 VIALS
     Route: 042
  2. REMICADE [Suspect]
     Indication: BEHCET'S SYNDROME
     Dosage: 8 VIALS
     Route: 042

REACTIONS (2)
  - JOINT HYPEREXTENSION [None]
  - BRONCHITIS [None]
